FAERS Safety Report 5903617-8 (Version None)
Quarter: 2008Q3

REPORT INFORMATION
  Report Type: 
  Country: None (occurrence: None)
  Receive Date: 20080930
  Receipt Date: 20080918
  Transmission Date: 20090109
  Serious: Yes (Other)
  Sender: FDA-Public Use
  Company Number: DE-PFIZER INC-2008079091

PATIENT
  Age: 38 Year
  Sex: Female

DRUGS (1)
  1. DEPO-CLINOVIR [Suspect]
     Indication: CONTRACEPTION
     Route: 030

REACTIONS (15)
  - ACNE [None]
  - ARTHRALGIA [None]
  - BORRELIA INFECTION [None]
  - CONDITION AGGRAVATED [None]
  - CONSTIPATION [None]
  - COUGH [None]
  - DEPRESSION [None]
  - DIARRHOEA [None]
  - EYE PAIN [None]
  - INSOMNIA [None]
  - JOINT STIFFNESS [None]
  - JOINT SWELLING [None]
  - STRABISMUS [None]
  - VISUAL IMPAIRMENT [None]
  - VULVOVAGINAL PRURITUS [None]
